FAERS Safety Report 14292665 (Version 1)
Quarter: 2017Q4

REPORT INFORMATION
  Report Type: Report from Study
  Country: US (occurrence: US)
  Receive Date: 20171215
  Receipt Date: 20171215
  Transmission Date: 20180321
  Serious: Yes (Death, Other)
  Sender: FDA-Public Use
  Company Number: US-UCBSA-2017050786

PATIENT
  Age: 34 Year
  Sex: Female

DRUGS (1)
  1. BLINDED LEVETIRACETAM [Suspect]
     Active Substance: LEVETIRACETAM
     Indication: PRODUCT USED FOR UNKNOWN INDICATION
     Dosage: UNK
     Dates: end: 20170301

REACTIONS (5)
  - Cardiac arrest [Unknown]
  - Seizure [Unknown]
  - Ventricular fibrillation [Unknown]
  - Death [Fatal]
  - Aspiration [Unknown]

NARRATIVE: CASE EVENT DATE: 20171119
